FAERS Safety Report 9731150 (Version 1)
Quarter: 2013Q4

REPORT INFORMATION
  Report Type: Spontaneous
  Country: US (occurrence: US)
  Receive Date: 20131203
  Receipt Date: 20131203
  Transmission Date: 20140711
  Serious: No
  Sender: FDA-Public Use
  Company Number: US-JNJFOC-20131113673

PATIENT
  Age: 34 Year
  Sex: Male
  Weight: 113.4 kg

DRUGS (3)
  1. DURAGESIC [Suspect]
     Indication: ARTHRALGIA
     Route: 062
     Dates: start: 201311
  2. RANITIDINE [Concomitant]
     Indication: THERAPEUTIC PROCEDURE
     Route: 065
     Dates: start: 2013
  3. TRAMADOL [Concomitant]
     Indication: ARTHRALGIA
     Route: 065

REACTIONS (4)
  - Drug dose omission [Not Recovered/Not Resolved]
  - Product quality issue [Unknown]
  - Product quality issue [Unknown]
  - Product adhesion issue [Unknown]
